FAERS Safety Report 15126318 (Version 1)
Quarter: 2018Q3

REPORT INFORMATION
  Report Type: Spontaneous
  Country: US (occurrence: US)
  Receive Date: 20180710
  Receipt Date: 20180710
  Transmission Date: 20181010
  Serious: No
  Sender: FDA-Public Use
  Company Number: US-BAYER-2018-124261

PATIENT

DRUGS (1)
  1. ALEVE [Suspect]
     Active Substance: NAPROXEN SODIUM
     Dosage: 0.5 DF, UNK
     Route: 065

REACTIONS (3)
  - Incorrect dose administered [Unknown]
  - Asthenia [Unknown]
  - Product prescribing issue [Unknown]
